FAERS Safety Report 21375799 (Version 2)
Quarter: 2022Q4

REPORT INFORMATION
  Report Type: Report from Study
  Country: EG (occurrence: None)
  Receive Date: 20220926
  Receipt Date: 20221110
  Transmission Date: 20230113
  Serious: Yes (Other)
  Sender: FDA-Public Use
  Company Number: EG-Merck Healthcare KGaA-9344068

PATIENT
  Age: 29 Year
  Sex: Female

DRUGS (2)
  1. MAVENCLAD [Suspect]
     Active Substance: CLADRIBINE
     Indication: Multiple sclerosis
     Dosage: YEAR ONE MONTH ONE THERAPY
     Route: 048
     Dates: start: 20220811
  2. MAVENCLAD [Suspect]
     Active Substance: CLADRIBINE
     Dosage: YEAR ONE MONTH ONE THERAPY
     Route: 048

REACTIONS (3)
  - Gastric ulcer [Not Recovered/Not Resolved]
  - Colitis [Not Recovered/Not Resolved]
  - Headache [Not Recovered/Not Resolved]
